FAERS Safety Report 7199841-X (Version None)
Quarter: 2010Q4

REPORT INFORMATION
  Report Type: 
  Country: None (occurrence: None)
  Receive Date: 20101228
  Receipt Date: 20101220
  Transmission Date: 20110411
  Serious: Yes (Other)
  Sender: FDA-Public Use
  Company Number: ES-B.I. PHARMACEUTICALS,INC./RIDGEFIELD-2010-DE-07105GD

PATIENT

DRUGS (3)
  1. NEVIRAPINE [Suspect]
     Indication: HIV INFECTION
     Dosage: 200 MG
  2. NEVIRAPINE [Suspect]
     Dosage: 400 MG
  3. ANTIRETROVIRAL BACKGROUND MEDICATION [Suspect]
     Indication: HIV INFECTION

REACTIONS (1)
  - SYPHILIS [None]
